FAERS Safety Report 7004688-0 (Version None)
Quarter: 2010Q3

REPORT INFORMATION
  Report Type: 
  Country: None (occurrence: None)
  Receive Date: 20100921
  Receipt Date: 20100907
  Transmission Date: 20110219
  Serious: Yes (Other)
  Sender: FDA-Public Use
  Company Number: PHHY2010AU60798

PATIENT
  Sex: Female
  Weight: 68 kg

DRUGS (25)
  1. ACLASTA [Suspect]
     Dosage: 5 MG/100 ML
  2. AMIODARONE HYDROCHLORIDE [Concomitant]
     Dosage: 200 MG, UNK
     Route: 048
  3. LASIX [Concomitant]
     Dosage: 40 MG, UNK
     Route: 048
  4. MICARDIS HCT [Concomitant]
     Dosage: 80/12.5 MG, DAILY
     Route: 048
  5. NORMISON [Concomitant]
     Dosage: 10 MG, UNK
     Route: 048
  6. ATENOLOL [Concomitant]
     Dosage: 50 MG, UNK
     Route: 048
  7. PANADOL [Concomitant]
     Dosage: TABLET (665 MG), TID
     Route: 048
  8. PANAMAX [Concomitant]
     Dosage: TABLET (500 MG), Q4H
     Route: 048
  9. SERETIDE [Concomitant]
     Dosage: 250-50 MCG/DOSE
  10. WARFARIN SODIUM [Concomitant]
     Dosage: 1 MG, DAILY
     Route: 048
  11. TET-TOX [Concomitant]
     Dosage: UNK
     Dates: start: 19971120
  12. PNEUMOVAX 23 [Concomitant]
     Dosage: UNK
     Dates: start: 19990524
  13. INFLUENZA VACCINE [Concomitant]
     Dosage: UNK
     Dates: start: 20020313
  14. INFLUENZA VACCINE [Concomitant]
     Dosage: UNK
     Dates: start: 20030226
  15. FLUVAX [Concomitant]
     Dosage: UNK
     Dates: start: 20040324
  16. FLUVAX [Concomitant]
     Dosage: UNK
     Dates: start: 20050413
  17. FLUVAX [Concomitant]
     Dosage: UNK
     Dates: start: 20090317
  18. FLUVAX [Concomitant]
     Dosage: UNK
  19. PNEUMOVAX 23 [Concomitant]
     Dosage: UNK
     Dates: start: 20040507
  20. VAXIGRIP [Concomitant]
     Dosage: UNK
     Dates: start: 20060320
  21. VAXIGRIP [Concomitant]
     Dosage: UNK
     Dates: start: 20070404
  22. VAXIGRIP [Concomitant]
     Dosage: UNK
     Dates: start: 20080423
  23. ADT VACCINE [Concomitant]
     Dosage: UNK
     Dates: start: 20060320
  24. PANVAX H1N1 [Concomitant]
     Dosage: UNK
     Dates: start: 20091209
  25. FLUAD [Concomitant]
     Dosage: UNK
     Dates: start: 20100325

REACTIONS (1)
  - RENAL IMPAIRMENT [None]
